FAERS Safety Report 8212389-6 (Version None)
Quarter: 2012Q1

REPORT INFORMATION
  Report Type: 
  Country: None (occurrence: None)
  Receive Date: 20120315
  Receipt Date: 20120307
  Transmission Date: 20120608
  Serious: No
  Sender: FDA-Public Use
  Company Number: CH-GILEAD-2012-0051569

PATIENT
  Age: 76 Year
  Sex: Male

DRUGS (6)
  1. PANTOPRAZOLE [Concomitant]
  2. DANCOR [Concomitant]
  3. ZESTRIL [Concomitant]
  4. PLAVIX [Concomitant]
  5. NEBIVOLOL HCL [Concomitant]
  6. RANOLAZINE [Suspect]
     Indication: CORONARY ARTERY DISEASE
     Dosage: 750 MG, QD
     Route: 048
     Dates: start: 20110701

REACTIONS (1)
  - COUGH [None]
